FAERS Safety Report 5512443-3 (Version None)
Quarter: 2007Q4

REPORT INFORMATION
  Report Type: 
  Country: None (occurrence: None)
  Receive Date: 20071112
  Receipt Date: 20061220
  Transmission Date: 20080405
  Serious: No
  Sender: FDA-Public Use
  Company Number: A0632297A

PATIENT
  Sex: Male

DRUGS (3)
  1. AVANDAMET [Suspect]
     Route: 048
     Dates: end: 20061219
  2. ASPIRIN [Concomitant]
  3. VITAMIN E [Concomitant]

REACTIONS (1)
  - BLOOD CREATINE PHOSPHOKINASE INCREASED [None]
